FAERS Safety Report 9978140 (Version 2)
Quarter: 2014Q1

REPORT INFORMATION
  Report Type: Spontaneous
  Country: US (occurrence: US)
  Receive Date: 20140306
  Receipt Date: 20140306
  Transmission Date: 20141002
  Serious: Yes (Disabling)
  Sender: FDA-Public Use
  Company Number: US-GE HEALTHCARE MEDICAL DIAGNOSTICS-OSCN-PR-0905S-0234

PATIENT
  Age: 53 Year
  Sex: Male
  Weight: 95.82 kg

DRUGS (15)
  1. OMNISCAN [Suspect]
     Indication: HEPATIC MASS
     Route: 042
     Dates: start: 20020913, end: 20020913
  2. OMNISCAN [Suspect]
     Indication: HEPATITIS C
     Route: 042
     Dates: start: 20030521, end: 20030521
  3. OMNISCAN [Suspect]
     Indication: PRODUCT USED FOR UNKNOWN INDICATION
     Route: 042
     Dates: start: 20030623, end: 20030623
  4. OMNISCAN [Suspect]
     Indication: CENTRAL NERVOUS SYSTEM LESION
     Route: 042
     Dates: start: 20030906, end: 20030906
  5. OMNISCAN [Suspect]
     Indication: LOCAL SWELLING
     Route: 042
     Dates: start: 20041021, end: 20041021
  6. OMNISCAN [Suspect]
     Indication: MUSCULOSKELETAL PAIN
     Route: 042
     Dates: start: 20041125, end: 20041125
  7. OMNISCAN [Suspect]
     Indication: NEUROPATHY PERIPHERAL
     Route: 042
     Dates: start: 20050616, end: 20050616
  8. OMNISCAN [Suspect]
     Route: 042
     Dates: start: 20050705, end: 20050705
  9. OMNISCAN [Suspect]
     Route: 042
     Dates: start: 20050809, end: 20050809
  10. OMNISCAN [Suspect]
     Route: 042
     Dates: start: 20050927, end: 20050927
  11. OMNISCAN [Suspect]
     Route: 042
     Dates: start: 20051004, end: 20051004
  12. GADOLINIUM (UNSPECIFIED) [Suspect]
     Indication: PRODUCT USED FOR UNKNOWN INDICATION
     Route: 042
     Dates: start: 20030905, end: 20030905
  13. MAGNEVIST [Suspect]
     Indication: PRODUCT USED FOR UNKNOWN INDICATION
     Route: 042
     Dates: start: 20050311, end: 20050311
  14. OPTIMARK [Suspect]
     Indication: HEPATOCELLULAR CARCINOMA
     Route: 042
     Dates: start: 20040625, end: 20040625
  15. OPTIMARK [Suspect]
     Indication: PRODUCT USED FOR UNKNOWN INDICATION
     Route: 042
     Dates: start: 20050311, end: 20050311

REACTIONS (1)
  - Nephrogenic systemic fibrosis [Not Recovered/Not Resolved]
